FAERS Safety Report 8418424-4 (Version None)
Quarter: 2012Q2

REPORT INFORMATION
  Report Type: 
  Country: None (occurrence: None)
  Receive Date: 20120607
  Receipt Date: 20120605
  Transmission Date: 20120825
  Serious: Yes (Death)
  Sender: FDA-Public Use
  Company Number: DZ-PFIZER INC-2012134494

PATIENT
  Age: 76 Year
  Sex: Female

DRUGS (5)
  1. PRAXILENE [Concomitant]
  2. LYRICA [Suspect]
     Indication: DIABETIC NEUROPATHY
     Dosage: 150 MG, SINGLE
     Route: 048
     Dates: start: 20120503, end: 20120503
  3. INSULIN [Concomitant]
  4. VALSARTAN  AND HYDROCHLOROTHIAZIDE [Concomitant]
  5. GLUCOPHAGE [Concomitant]

REACTIONS (1)
  - DEATH [None]
